APPROVED DRUG PRODUCT: ETIDRONATE DISODIUM
Active Ingredient: ETIDRONATE DISODIUM
Strength: 400MG
Dosage Form/Route: TABLET;ORAL
Application: A075800 | Product #002
Applicant: PHARMOBEDIENT CONSULTING LLC
Approved: Jan 24, 2003 | RLD: No | RS: No | Type: DISCN